FAERS Safety Report 8456892-2 (Version None)
Quarter: 2012Q2

REPORT INFORMATION
  Report Type: 
  Country: None (occurrence: None)
  Receive Date: 20120323
  Receipt Date: 20110915
  Transmission Date: 20120825
  Serious: Yes (Disabling)
  Sender: FDA-Public Use
  Company Number: 163-21880-11092064

PATIENT
  Age: 65 Year
  Sex: Male

DRUGS (15)
  1. BACTRIM DS [Concomitant]
  2. METOPROLOL TARTRATE [Concomitant]
  3. CLARITIN [Concomitant]
  4. OXYCONTIN [Concomitant]
  5. FUROSEMIDE [Concomitant]
  6. CLARITIN-D [Concomitant]
  7. REVLIMID [Suspect]
     Indication: MULTIPLE MYELOMA
     Dosage: 25 MG, 1 IN 1 D, PO ; 20-10MG, DAILY, PO ; 5 MG, 1 IN 1 D, PO ;  10 MG, 1 IN 1 D, PO
     Route: 048
     Dates: start: 20110801
  8. REVLIMID [Suspect]
     Indication: MULTIPLE MYELOMA
     Dosage: 25 MG, 1 IN 1 D, PO ; 20-10MG, DAILY, PO ; 5 MG, 1 IN 1 D, PO ;  10 MG, 1 IN 1 D, PO
     Route: 048
     Dates: start: 20080101
  9. REVLIMID [Suspect]
     Indication: MULTIPLE MYELOMA
     Dosage: 25 MG, 1 IN 1 D, PO ; 20-10MG, DAILY, PO ; 5 MG, 1 IN 1 D, PO ;  10 MG, 1 IN 1 D, PO
     Route: 048
     Dates: start: 20101201
  10. REVLIMID [Suspect]
     Indication: MULTIPLE MYELOMA
     Dosage: 25 MG, 1 IN 1 D, PO ; 20-10MG, DAILY, PO ; 5 MG, 1 IN 1 D, PO ;  10 MG, 1 IN 1 D, PO
     Route: 048
     Dates: start: 20070901
  11. ACYCLOVIR [Concomitant]
  12. PRILOSEC [Concomitant]
  13. LEVOTHYROXINE SODIUM [Concomitant]
  14. WARFARIN SODIUM [Concomitant]
  15. OXYCODONE HCL [Concomitant]

REACTIONS (4)
  - DIZZINESS [None]
  - WEIGHT DECREASED [None]
  - HEADACHE [None]
  - RESPIRATORY TRACT CONGESTION [None]
